FAERS Safety Report 17824186 (Version 1)
Quarter: 2020Q2

REPORT INFORMATION
  Report Type: Spontaneous
  Country: GB (occurrence: GB)
  Receive Date: 20200526
  Receipt Date: 20200526
  Transmission Date: 20200714
  Serious: Yes (Disabling)
  Sender: FDA-Public Use
  Company Number: NVSC2020GB137270

PATIENT
  Age: 70 Year
  Sex: Male

DRUGS (6)
  1. DORZOLAMID/TIMOLOL [Suspect]
     Active Substance: DORZOLAMIDE HYDROCHLORIDE\TIMOLOL MALEATE
     Indication: OCULAR HYPERTENSION
     Dosage: 1 DF, QD
     Route: 031
  2. METHOTREXATE. [Concomitant]
     Active Substance: METHOTREXATE
     Indication: IDIOPATHIC ORBITAL INFLAMMATION
     Dosage: 7.5 MG, QW
     Route: 048
  3. FOLIC ACID. [Concomitant]
     Active Substance: FOLIC ACID
     Indication: IDIOPATHIC ORBITAL INFLAMMATION
     Dosage: 5 MG, QD
     Route: 065
  4. BRIMONIDINE [Concomitant]
     Active Substance: BRIMONIDINE TARTRATE
     Indication: OCULAR HYPERTENSION
     Dosage: 1 DF, QD
     Route: 031
  5. LATANOPROST. [Suspect]
     Active Substance: LATANOPROST
     Indication: OCULAR HYPERTENSION
     Dosage: 1 DF, QD
     Route: 031
  6. ACETAZOLAMIDE. [Concomitant]
     Active Substance: ACETAZOLAMIDE
     Indication: OCULAR HYPERTENSION
     Dosage: 250 MG, QD
     Route: 048

REACTIONS (2)
  - Keratopathy [Recovering/Resolving]
  - Drug intolerance [Not Recovered/Not Resolved]
